FAERS Safety Report 15611532 (Version 1)
Quarter: 2018Q4

REPORT INFORMATION
  Report Type: Spontaneous
  Country: DE (occurrence: DE)
  Receive Date: 20181113
  Receipt Date: 20181113
  Transmission Date: 20190205
  Serious: Yes (Congenital Anomaly, Other)
  Sender: FDA-Public Use
  Company Number: DE-AUROBINDO-AUR-APL-2018-054887

PATIENT
  Age: 1 Day
  Sex: Female
  Weight: 3.14 kg

DRUGS (7)
  1. LIPROLOG [Concomitant]
     Active Substance: INSULIN LISPRO
     Indication: GESTATIONAL DIABETES
     Dosage: 16 [I.E./D ]/ FIRST 4 IE/D, IN THE END 16 IE/D.
     Route: 064
     Dates: start: 20180308, end: 20180504
  2. AMOXICILLIN. [Concomitant]
     Active Substance: AMOXICILLIN
     Indication: OTITIS MEDIA
     Dosage: 3000 MILLIGRAM, ONCE A DAY
     Route: 064
     Dates: start: 20180328, end: 20180403
  3. CITALOPRAM [Suspect]
     Active Substance: CITALOPRAM HYDROBROMIDE
     Indication: DEPRESSION
     Dosage: 20 MILLIGRAM, ONCE A DAY
     Route: 064
     Dates: start: 20170816, end: 20180504
  4. ZELDOX [Suspect]
     Active Substance: ZIPRASIDONE
     Indication: DEPRESSION
     Dosage: 160 MILLIGRAM, ONCE A DAY
     Route: 064
     Dates: start: 20170816, end: 20180504
  5. HUMINSULIN [Concomitant]
     Active Substance: INSULIN HUMAN
     Indication: GESTATIONAL DIABETES
     Dosage: 38 [I.E./D ]/ INCREASE FROM 6 IE TO 38 IE/D DURING THE COURSE OF PREGNANCY
     Route: 064
     Dates: start: 20180223, end: 20180504
  6. VITAMIN D3 HEVERT [Concomitant]
     Indication: VITAMIN D DEFICIENCY
     Dosage: 3000 INTERNATIONAL UNIT, ONCE A DAY
     Route: 064
     Dates: start: 20170816, end: 20180504
  7. XYLOMETAZOLINE [Concomitant]
     Active Substance: XYLOMETAZOLINE
     Indication: OTITIS MEDIA
     Dosage: UNK
     Route: 064
     Dates: start: 20180328, end: 20180330

REACTIONS (5)
  - Atrial septal defect [Unknown]
  - Neonatal hypoxia [Recovered/Resolved]
  - Neonatal respiratory distress syndrome [Recovered/Resolved]
  - Foetal exposure during pregnancy [Unknown]
  - Ventricular septal defect [Unknown]

NARRATIVE: CASE EVENT DATE: 20180504
